FAERS Safety Report 13662662 (Version 1)
Quarter: 2017Q2

REPORT INFORMATION
  Report Type: Spontaneous
  Country: US (occurrence: US)
  Receive Date: 20170616
  Receipt Date: 20170616
  Transmission Date: 20170830
  Serious: Yes (Other)
  Sender: FDA-Public Use
  Company Number: None

PATIENT

DRUGS (4)
  1. AMBIAM [Concomitant]
  2. CELEBREX [Concomitant]
     Active Substance: CELECOXIB
  3. NEXIUM [Concomitant]
     Active Substance: ESOMEPRAZOLE MAGNESIUM
  4. LEVAQUIN [Suspect]
     Active Substance: LEVOFLOXACIN
     Dosage: ?          QUANTITY:THING?.I N I. .\.;?

REACTIONS (3)
  - Panic reaction [None]
  - Dizziness [None]
  - Adverse drug reaction [None]

NARRATIVE: CASE EVENT DATE: 20160922
